FAERS Safety Report 6125384-8 (Version None)
Quarter: 2009Q1

REPORT INFORMATION
  Report Type: 
  Country: None (occurrence: None)
  Receive Date: 20090319
  Receipt Date: 20090319
  Transmission Date: 20090719
  Serious: Yes (Hospitalization)
  Sender: FDA-Public Use
  Company Number: None

PATIENT
  Age: 53 Year
  Sex: Male

DRUGS (1)
  1. IOPAMIDOL [Suspect]
     Indication: DIAGNOSTIC PROCEDURE
     Dates: start: 20081209

REACTIONS (2)
  - CONTRAST MEDIA REACTION [None]
  - CONVULSION [None]
